FAERS Safety Report 5690300-X (Version None)
Quarter: 2008Q1

REPORT INFORMATION
  Report Type: 
  Country: None (occurrence: None)
  Receive Date: 20080331
  Receipt Date: 20080331
  Transmission Date: 20080703
  Serious: Yes (Other)
  Sender: FDA-Public Use
  Company Number: None

PATIENT
  Age: 50 Year
  Sex: Female
  Weight: 64.4108 kg

DRUGS (2)
  1. SINGULAIR [Suspect]
     Indication: MULTIPLE ALLERGIES
     Dosage: 1 10MG TABLET ONCE DAILY PO
     Route: 048
     Dates: start: 20041009, end: 20071015
  2. SINGULAIR [Suspect]
     Indication: SEASONAL ALLERGY
     Dosage: 1 10MG TABLET ONCE DAILY PO
     Route: 048
     Dates: start: 20041009, end: 20071015

REACTIONS (7)
  - ALOPECIA [None]
  - HYPOAESTHESIA ORAL [None]
  - MUSCULOSKELETAL STIFFNESS [None]
  - NEUROPATHY PERIPHERAL [None]
  - PAIN IN JAW [None]
  - TENDONITIS [None]
  - TOOTHACHE [None]
